FAERS Safety Report 8152093 (Version 2)
Quarter: 2013Q1

REPORT INFORMATION
  Report Type: Spontaneous
  Country: US (occurrence: US)
  Receive Date: 20110922
  Receipt Date: 20130218
  Transmission Date: 20140127
  Serious: Yes (Other)
  Sender: FDA-Public Use
  Company Number: US-ASTRAZENECA-2011SE12626

PATIENT
  Age: 17558 Day
  Sex: Male

DRUGS (16)
  1. SEROQUEL [Suspect]
     Route: 048
     Dates: start: 20040310
  2. CALCIUM [Concomitant]
     Route: 048
     Dates: start: 20040310
  3. FLUOXETINE HCL [Concomitant]
     Indication: DEPRESSION
     Route: 048
     Dates: start: 20040310
  4. FOLIC ACID [Concomitant]
     Indication: VITAMIN SUPPLEMENTATION
     Route: 048
     Dates: start: 20040310
  5. IBUPROFEN [Concomitant]
     Indication: PAIN
     Route: 048
     Dates: start: 20040310
  6. IBUPROFEN [Concomitant]
     Indication: PAIN
     Route: 048
     Dates: start: 20101130
  7. LORATADINE [Concomitant]
     Indication: MULTIPLE ALLERGIES
     Route: 048
     Dates: start: 20040310
  8. SILDENAFIL CITRATE [Concomitant]
     Route: 048
     Dates: start: 20040310
  9. THIAMINE HCL [Concomitant]
     Route: 048
     Dates: start: 20040310
  10. DIAZEPAM [Concomitant]
     Indication: DEPRESSION
     Route: 048
     Dates: start: 20101130
  11. DIAZEPAM [Concomitant]
     Indication: POST-TRAUMATIC STRESS DISORDER
     Route: 048
     Dates: start: 20101130
  12. DOCUSATE NA [Concomitant]
     Indication: FAECES HARD
     Route: 048
     Dates: start: 20101130
  13. FUROSEMIDE [Concomitant]
     Indication: BLOOD PRESSURE
     Route: 048
     Dates: start: 20101130
  14. FUROSEMIDE [Concomitant]
     Indication: OEDEMA PERIPHERAL
     Route: 048
     Dates: start: 20101130
  15. LISINOPRIL [Concomitant]
     Indication: BLOOD PRESSURE
     Route: 048
     Dates: start: 20040310
  16. METOPROLOL TARTRATE [Concomitant]
     Indication: BLOOD PRESSURE
     Route: 048
     Dates: start: 20040310

REACTIONS (4)
  - Pancreatitis [Unknown]
  - Diabetic coma [Unknown]
  - Type 2 diabetes mellitus [Unknown]
  - Diplopia [Unknown]
